FAERS Safety Report 19642779 (Version 1)
Quarter: 2021Q3

REPORT INFORMATION
  Report Type: Spontaneous
  Country: CN (occurrence: CN)
  Receive Date: 20210730
  Receipt Date: 20210730
  Transmission Date: 20211014
  Serious: Yes (Disabling)
  Sender: FDA-Public Use
  Company Number: CN-PFIZER INC-202100924101

PATIENT
  Age: 30 Year
  Sex: Female
  Weight: 52 kg

DRUGS (1)
  1. METHOTREXATE. [Suspect]
     Active Substance: METHOTREXATE
     Indication: ECTOPIC PREGNANCY
     Dosage: 75 MG, 1X/DAY
     Route: 030
     Dates: start: 20210621, end: 20210622

REACTIONS (2)
  - Liver injury [Recovering/Resolving]
  - Off label use [Unknown]

NARRATIVE: CASE EVENT DATE: 20210621
